FAERS Safety Report 4579968-9 (Version None)
Quarter: 2005Q1

REPORT INFORMATION
  Report Type: 
  Country: None (occurrence: None)
  Receive Date: 20050210
  Receipt Date: 20050124
  Transmission Date: 20050727
  Serious: Yes (Hospitalization)
  Sender: FDA-Public Use
  Company Number: 2005-124386-NL

PATIENT
  Sex: Male

DRUGS (1)
  1. MIRTAZAPINE [Suspect]
     Dosage: DF

REACTIONS (3)
  - INTENTIONAL MISUSE [None]
  - POISONING [None]
  - SUICIDE ATTEMPT [None]
